FAERS Safety Report 4843220-4 (Version None)
Quarter: 2005Q4

REPORT INFORMATION
  Report Type: 
  Country: None (occurrence: None)
  Receive Date: 20051201
  Receipt Date: 20050609
  Transmission Date: 20060501
  Serious: Yes (Hospitalization, Disabling)
  Sender: FDA-Public Use
  Company Number: US-MERCK-0506USA01495

PATIENT
  Age: 55 Year
  Sex: Male
  Weight: 95 kg

DRUGS (5)
  1. VIOXX [Suspect]
     Indication: INTERVERTEBRAL DISC DEGENERATION
     Route: 048
     Dates: start: 20000801, end: 20041006
  2. VIOXX [Suspect]
     Route: 048
     Dates: start: 20000420, end: 20000801
  3. VIOXX [Suspect]
     Route: 048
     Dates: start: 20000801, end: 20010401
  4. VIOXX [Suspect]
     Route: 048
     Dates: start: 20010401, end: 20041006
  5. ASPIRIN [Concomitant]
     Route: 065

REACTIONS (5)
  - ACUTE MYOCARDIAL INFARCTION [None]
  - ANXIETY [None]
  - CARDIAC DISORDER [None]
  - DEPRESSION [None]
  - INTERVERTEBRAL DISC DISORDER [None]
